FAERS Safety Report 10336866 (Version 2)
Quarter: 2014Q3

REPORT INFORMATION
  Report Type: Spontaneous
  Country: US (occurrence: US)
  Receive Date: 20140723
  Receipt Date: 20140723
  Transmission Date: 20150326
  Serious: No
  Sender: FDA-Public Use
  Company Number: US-MYLANLABS-2013S1021890

PATIENT
  Age: 59 Year
  Sex: Male
  Weight: 77.5 kg

DRUGS (5)
  1. FOSAPREPITANT [Concomitant]
     Active Substance: FOSAPREPITANT
  2. DEXAMETHASONE. [Concomitant]
     Active Substance: DEXAMETHASONE
  3. ONDANSETRON [Concomitant]
     Active Substance: ONDANSETRON
     Dosage: PRE CHEMO
  4. MELPHALAN HYDROCHLORIDE. [Suspect]
     Active Substance: MELPHALAN HYDROCHLORIDE
     Indication: STEM CELL TRANSPLANT
     Route: 042
     Dates: start: 20130804, end: 20130804
  5. MELPHALAN HYDROCHLORIDE. [Suspect]
     Active Substance: MELPHALAN HYDROCHLORIDE
     Indication: STEM CELL TRANSPLANT
     Route: 042
     Dates: start: 20130804, end: 20130804

REACTIONS (1)
  - Hypersensitivity [Recovered/Resolved]

NARRATIVE: CASE EVENT DATE: 20130804
